FAERS Safety Report 24425035 (Version 1)
Quarter: 2024Q4

REPORT INFORMATION
  Report Type: Report from Study
  Country: US (occurrence: US)
  Receive Date: 20241010
  Receipt Date: 20241010
  Transmission Date: 20250115
  Serious: No
  Sender: SANDOZ
  Company Number: US-SANDOZ-SDZ2024US027873

PATIENT
  Age: 9 Year
  Sex: Female

DRUGS (4)
  1. OMNITROPE [Suspect]
     Active Substance: SOMATROPIN
     Indication: Chronic kidney disease
     Dosage: 1 MG, QD
     Route: 058
     Dates: start: 20240309
  2. OMNITROPE [Suspect]
     Active Substance: SOMATROPIN
     Indication: Chronic kidney disease
     Dosage: 1 MG, QD
     Route: 058
     Dates: start: 20240309
  3. OMNITROPE [Suspect]
     Active Substance: SOMATROPIN
     Dosage: UNK
     Route: 065
     Dates: start: 20240306
  4. OMNITROPE [Suspect]
     Active Substance: SOMATROPIN
     Dosage: UNK
     Route: 065
     Dates: start: 20240306

REACTIONS (6)
  - Injection site bruising [Unknown]
  - Injection site discolouration [Unknown]
  - Off label use [Unknown]
  - Device breakage [Unknown]
  - Drug dose omission by device [Unknown]
  - Device mechanical issue [Unknown]

NARRATIVE: CASE EVENT DATE: 20240930
